FAERS Safety Report 20548393 (Version 1)
Quarter: 2022Q1

REPORT INFORMATION
  Report Type: Spontaneous
  Country: US (occurrence: US)
  Receive Date: 20220303
  Receipt Date: 20220303
  Transmission Date: 20220423
  Serious: No
  Sender: FDA-Public Use
  Company Number: US-ALLERGAN-2107791US

PATIENT
  Age: 89 Year
  Sex: Female

DRUGS (4)
  1. RESTASIS [Suspect]
     Active Substance: CYCLOSPORINE
     Indication: Dry eye
     Dosage: 1 DROP TO EACH EYE TWICE DAILY, 12 HOURS APART
     Route: 047
     Dates: start: 202102, end: 20210223
  2. AMIODARONE [Concomitant]
     Active Substance: AMIODARONE
     Indication: Cardiac disorder
  3. unspecified heart  medications [Concomitant]
     Indication: Cardiac disorder
  4. UNSPECIFIED INGREDIENT [Concomitant]
     Active Substance: UNSPECIFIED INGREDIENT
     Indication: Eyelid ptosis
     Dosage: UNK
     Route: 047

REACTIONS (4)
  - Periorbital swelling [Recovering/Resolving]
  - Eye pruritus [Recovered/Resolved]
  - Drug hypersensitivity [Recovered/Resolved]
  - Ocular hyperaemia [Recovered/Resolved]

NARRATIVE: CASE EVENT DATE: 20210201
